FAERS Safety Report 7288452-3 (Version None)
Quarter: 2011Q1

REPORT INFORMATION
  Report Type: 
  Country: None (occurrence: None)
  Receive Date: 20110211
  Receipt Date: 20110203
  Transmission Date: 20110831
  Serious: Yes (Other)
  Sender: FDA-Public Use
  Company Number: B0684398A

PATIENT
  Sex: Female

DRUGS (5)
  1. SUMATRIPTAN SUCCINATE [Concomitant]
     Indication: MIGRAINE
     Route: 048
  2. VOXRA [Suspect]
     Indication: DEPRESSION
     Dosage: 300MG PER DAY
     Route: 065
     Dates: start: 20100315
  3. INDERAL [Concomitant]
     Indication: MIGRAINE
     Dosage: 40MG PER DAY
  4. PARAFLEX COMP [Concomitant]
     Indication: PAIN
     Route: 048
  5. SERTRALINE HYDROCHLORIDE [Concomitant]

REACTIONS (3)
  - BLEEDING TIME PROLONGED [None]
  - ECCHYMOSIS [None]
  - INCREASED TENDENCY TO BRUISE [None]
